FAERS Safety Report 8522698-9 (Version None)
Quarter: 2012Q3

REPORT INFORMATION
  Report Type: 
  Country: None (occurrence: None)
  Receive Date: 20120719
  Receipt Date: 20120716
  Transmission Date: 20120928
  Serious: Yes (Death)
  Sender: FDA-Public Use
  Company Number: PE-GLAXOSMITHKLINE-A0984945A

PATIENT
  Sex: Female

DRUGS (1)
  1. FLUTICASONE PROPIONATE/SALMETEROL [Suspect]
     Indication: PULMONARY FIBROSIS
     Dosage: 2PUFF PER DAY
     Route: 065
     Dates: start: 20120220

REACTIONS (1)
  - BRONCHOPNEUMONIA [None]
